FAERS Safety Report 10365403 (Version 1)
Quarter: 2014Q3

REPORT INFORMATION
  Report Type: Report from Study
  Country: BR (occurrence: BR)
  Receive Date: 20140806
  Receipt Date: 20140806
  Transmission Date: 20150326
  Serious: Yes (Hospitalization, Disabling, Other)
  Sender: FDA-Public Use
  Company Number: BR-ABBVIE-14K-020-1266770-00

PATIENT
  Age: 44 Year
  Sex: Male
  Weight: 80 kg

DRUGS (2)
  1. HUMIRA [Suspect]
     Active Substance: ADALIMUMAB
     Dosage: UNSPECIFIED DOSE
     Route: 058
     Dates: end: 20110801
  2. HUMIRA [Suspect]
     Active Substance: ADALIMUMAB
     Indication: CROHN^S DISEASE
     Dosage: INDUCTION DOSE
     Route: 058
     Dates: start: 20100426, end: 20100426

REACTIONS (11)
  - Hemiplegia [Recovered/Resolved with Sequelae]
  - Fibrosis [Unknown]
  - Ileal stenosis [Recovered/Resolved]
  - Demyelination [Recovered/Resolved with Sequelae]
  - Crohn^s disease [Not Recovered/Not Resolved]
  - Blood disorder [Unknown]
  - Movement disorder [Not Recovered/Not Resolved]
  - Small intestinal stenosis [Recovered/Resolved]
  - Intestinal stenosis [Unknown]
  - Unevaluable event [Not Recovered/Not Resolved]
  - Eye penetration [Not Recovered/Not Resolved]

NARRATIVE: CASE EVENT DATE: 20110730
